FAERS Safety Report 8374880-1 (Version None)
Quarter: 2012Q2

REPORT INFORMATION
  Report Type: 
  Country: None (occurrence: None)
  Receive Date: 20120521
  Receipt Date: 20120515
  Transmission Date: 20120825
  Serious: No
  Sender: FDA-Public Use
  Company Number: US-PFIZER INC-2012118309

PATIENT
  Sex: Female
  Weight: 17.234 kg

DRUGS (2)
  1. DEPAKOTE [Concomitant]
     Indication: EPILEPSY
     Dosage: UNK
  2. AZITHROMYCIN [Suspect]
     Indication: PNEUMONIA
     Dosage: 125 MG, 1X/DAY
     Route: 048
     Dates: start: 20120514, end: 20120515

REACTIONS (4)
  - WRONG TECHNIQUE IN DRUG USAGE PROCESS [None]
  - RETCHING [None]
  - VOMITING [None]
  - PRODUCT TASTE ABNORMAL [None]
